FAERS Safety Report 23315971 (Version 1)
Quarter: 2023Q4

REPORT INFORMATION
  Report Type: Spontaneous
  Country: IQ (occurrence: IQ)
  Receive Date: 20231219
  Receipt Date: 20231219
  Transmission Date: 20240109
  Serious: Yes (Death, Other)
  Sender: FDA-Public Use
  Company Number: IQ-009507513-2312IRQ006729

PATIENT
  Age: 68 Year
  Sex: Male

DRUGS (4)
  1. KEYTRUDA [Suspect]
     Active Substance: PEMBROLIZUMAB
     Indication: Head and neck cancer
     Dosage: 7 CYCLES
     Dates: start: 202105
  2. KEYTRUDA [Suspect]
     Active Substance: PEMBROLIZUMAB
     Indication: Laryngeal cancer
  3. TAXOTERE [Suspect]
     Active Substance: DOCETAXEL
     Indication: Head and neck cancer
     Dosage: UNK
     Dates: start: 202201
  4. TAXOTERE [Suspect]
     Active Substance: DOCETAXEL
     Indication: Laryngeal cancer

REACTIONS (4)
  - Death [Fatal]
  - Myocardial ischaemia [Unknown]
  - Malignant neoplasm progression [Unknown]
  - Supportive care [Unknown]
